FAERS Safety Report 8413914-2 (Version None)
Quarter: 2012Q2

REPORT INFORMATION
  Report Type: 
  Country: None (occurrence: None)
  Receive Date: 20120605
  Receipt Date: 20120531
  Transmission Date: 20120825
  Serious: Yes (Life-Threatening, Hospitalization, Other)
  Sender: FDA-Public Use
  Company Number: TW-ABBOTT-12P-153-0940880-00

PATIENT
  Sex: Male
  Weight: 38 kg

DRUGS (1)
  1. HUMIRA [Suspect]
     Indication: RHEUMATOID ARTHRITIS
     Route: 058
     Dates: start: 20110609, end: 20120502

REACTIONS (3)
  - WHEEZING [None]
  - CARDIOPULMONARY FAILURE [None]
  - DYSPNOEA [None]
